FAERS Safety Report 4612904-5 (Version None)
Quarter: 2005Q1

REPORT INFORMATION
  Report Type: 
  Country: None (occurrence: None)
  Receive Date: 20050318
  Receipt Date: 20050312
  Transmission Date: 20050727
  Serious: Yes (Disabling)
  Sender: FDA-Public Use
  Company Number: GB-GLAXOSMITHKLINE-B0374536A

PATIENT
  Age: 78 Year
  Sex: Female
  Weight: 42 kg

DRUGS (6)
  1. SERETIDE [Suspect]
     Indication: CHRONIC OBSTRUCTIVE PULMONARY DISEASE
     Route: 055
     Dates: start: 20050218, end: 20050219
  2. OXYBUTYNIN [Concomitant]
     Indication: URINARY INCONTINENCE
     Dosage: 3MG PER DAY
     Route: 048
     Dates: start: 20000224
  3. CO-CODAMOL [Concomitant]
     Indication: PAIN
     Route: 048
  4. FEXOFENADINE HCL [Concomitant]
     Indication: URTICARIA
     Route: 048
     Dates: start: 20030501
  5. ALBUTEROL [Concomitant]
     Dosage: 2PUFF AS REQUIRED
     Dates: start: 19950201
  6. TIOTROPIUM BROMIDE [Concomitant]
     Route: 065

REACTIONS (4)
  - DIZZINESS [None]
  - NERVOUSNESS [None]
  - PRURITUS [None]
  - RASH [None]
